FAERS Safety Report 7322842-5 (Version None)
Quarter: 2011Q1

REPORT INFORMATION
  Report Type: 
  Country: None (occurrence: None)
  Receive Date: 20110215
  Receipt Date: 20110207
  Transmission Date: 20110831
  Serious: Yes (Death)
  Sender: FDA-Public Use
  Company Number: 2010US002094

PATIENT
  Age: 68 Year
  Sex: Male
  Weight: 77 kg

DRUGS (8)
  1. ATENOLOL CHLORTHALIDONE (ATENOLOL, CHLORTALIDONE) TABLET [Concomitant]
  2. NEXIUM IV [Concomitant]
  3. PERCOCET (OXYCODONE HYDROCHLORIDE) TABLET [Concomitant]
  4. MULTIVITAMIN (VITAMINS NOS) TABLET [Concomitant]
  5. CHANTIX [Concomitant]
  6. FLEXERIL [Concomitant]
  7. AMEVIVE [Suspect]
     Indication: PSORIASIS
     Dosage: 15 MG, WEEKLY, INTRAMUSCULAR
     Route: 030
     Dates: start: 20071109, end: 20080131
  8. DARVOCET-N 100 (DEXTROPROPOXYPHENE NAPSILATE, PARACETAMOL) TABLET [Concomitant]

REACTIONS (9)
  - VENTRICULAR TACHYCARDIA [None]
  - VENTRICULAR FIBRILLATION [None]
  - HYPERTENSION [None]
  - SNORING [None]
  - CARDIAC ARREST [None]
  - CHEST PAIN [None]
  - UNRESPONSIVE TO STIMULI [None]
  - CORONARY ARTERY DISEASE [None]
  - MYOCARDIAL INFARCTION [None]
